FAERS Safety Report 15790679 (Version 1)
Quarter: 2019Q1

REPORT INFORMATION
  Report Type: Spontaneous
  Country: US (occurrence: US)
  Receive Date: 20190104
  Receipt Date: 20190104
  Transmission Date: 20190417
  Serious: Yes (Death, Life-Threatening, Hospitalization)
  Sender: FDA-Public Use
  Company Number: US-BAYER-2019-003317

PATIENT
  Age: 2 Year
  Sex: Male

DRUGS (3)
  1. METHADONE [Suspect]
     Active Substance: METHADONE HYDROCHLORIDE
  2. CHLORPHENIRAMINE MALEATE. [Suspect]
     Active Substance: CHLORPHENIRAMINE MALEATE
  3. DIPHENHYDRAMINE. [Suspect]
     Active Substance: DIPHENHYDRAMINE

REACTIONS (8)
  - Hypoxic-ischaemic encephalopathy [Fatal]
  - Cardiac arrest [None]
  - Unresponsive to stimuli [None]
  - Lethargy [None]
  - Toxicity to various agents [Fatal]
  - Hypotension [None]
  - Respiratory distress [None]
  - Intentional product misuse [Fatal]
